FAERS Safety Report 5019271-6 (Version None)
Quarter: 2006Q2

REPORT INFORMATION
  Report Type: 
  Country: None (occurrence: None)
  Receive Date: 20060531
  Receipt Date: 20060522
  Transmission Date: 20061013
  Serious: Yes (Hospitalization)
  Sender: FDA-Public Use
  Company Number: NO-2005-027098

PATIENT
  Age: 52 Year
  Sex: Female

DRUGS (1)
  1. LEVONORGESTREL [Suspect]
     Indication: MENOPAUSAL SYMPTOMS
     Dosage: 20 UG/DAY, CONT, INTRA-UTERINE
     Route: 015
     Dates: start: 20050411, end: 20050504

REACTIONS (10)
  - ABDOMINAL DISTENSION [None]
  - CHEST X-RAY [None]
  - DYSPNOEA [None]
  - FEAR [None]
  - IRRITABILITY [None]
  - IRRITABLE BOWEL SYNDROME [None]
  - LUNG DISORDER [None]
  - PREMENSTRUAL SYNDROME [None]
  - STRESS [None]
  - VAGINAL CANDIDIASIS [None]
